FAERS Safety Report 5767315-6 (Version None)
Quarter: 2008Q2

REPORT INFORMATION
  Report Type: 
  Country: None (occurrence: None)
  Receive Date: 20080606
  Receipt Date: 20080526
  Transmission Date: 20081010
  Serious: Yes (Hospitalization, Other)
  Sender: FDA-Public Use
  Company Number: DSU-2008-00628

PATIENT
  Age: 60 Year
  Sex: Male
  Weight: 90 kg

DRUGS (7)
  1. OLMESARTAN MEDOXOMIL [Suspect]
     Indication: HYPERTENSION
     Dosage: 40 MG (40 MG, QD), PER ORAL
     Route: 048
     Dates: start: 20080405, end: 20080428
  2. INDAPAMIDE [Suspect]
     Indication: HYPERTENSION
     Dosage: 1.5 MG (1.5 MG,QD), PARAVENOUS
     Dates: start: 20080306, end: 20080428
  3. PIOGLITAZONE (PIOGLITAZONE) (PIOGLITAZONE) [Concomitant]
  4. METFORMIN (METFORMIN) (METFORMIN) [Concomitant]
  5. NPH INSULIN (INSULIN INJECTION, ISOPHANE) (INSULIN INJECTION ISOPHANE) [Concomitant]
  6. GABAPENTIN (GABAPENTIN) (GABAPENTIN) [Concomitant]
  7. CARVEDILOL [Suspect]
     Indication: HYPERTENSION
     Dosage: 50 MG (25 MG, BID), PER ORAL
     Route: 048
     Dates: start: 20080306, end: 20080428

REACTIONS (3)
  - ARTERIOSCLEROSIS CORONARY ARTERY [None]
  - CORONARY ARTERY DISEASE [None]
  - MYOCARDIAL ISCHAEMIA [None]
